FAERS Safety Report 17638279 (Version 2)
Quarter: 2020Q2

REPORT INFORMATION
  Report Type: Report from Study
  Country: GB (occurrence: GB)
  Receive Date: 20200407
  Receipt Date: 20200417
  Transmission Date: 20200713
  Serious: Yes (Hospitalization)
  Sender: FDA-Public Use
  Company Number: GB-ASPEN-GLO2020GB003586

PATIENT
  Age: 78 Year
  Sex: Male
  Weight: 78.6 kg

DRUGS (16)
  1. BORTEZOMIB. [Suspect]
     Active Substance: BORTEZOMIB
     Indication: PLASMA CELL MYELOMA
     Dosage: 2.5 MG/M2
     Route: 058
     Dates: start: 20170428, end: 20170814
  2. PNEUMOCOCCAL VACCINE POLYVALENT NOS [Concomitant]
     Active Substance: PNEUMOCOCCAL VACCINE POLYVALENT
     Indication: PROPHYLAXIS
     Route: 065
  3. COTRIMOXAZOLE [Concomitant]
     Active Substance: SULFAMETHOXAZOLE\TRIMETHOPRIM
     Indication: ANTIBIOTIC PROPHYLAXIS
     Dosage: 2880 MG, 1 DOSE WEEKLY
     Route: 048
     Dates: start: 20170428, end: 20190328
  4. ALLOPURINOL. [Concomitant]
     Active Substance: ALLOPURINOL
     Indication: TUMOUR LYSIS SYNDROME
     Dosage: 300 MG, QD
     Route: 048
     Dates: start: 20170428, end: 20170518
  5. VENETOCLAX. [Suspect]
     Active Substance: VENETOCLAX
     Indication: PLASMA CELL MYELOMA
     Dosage: 600 MG (TABLET)
     Route: 048
     Dates: start: 20171012, end: 20200305
  6. DOXYCYCLINE. [Concomitant]
     Active Substance: DOXYCYCLINE
     Indication: ANTIBIOTIC PROPHYLAXIS
     Dosage: 400 MG, QD
     Route: 048
     Dates: start: 20190329
  7. DEXAMETHASONE. [Suspect]
     Active Substance: DEXAMETHASONE
     Indication: PLASMA CELL MYELOMA
     Dosage: 12 MG
     Route: 048
     Dates: start: 20190222, end: 20191130
  8. DEXAMETHASONE. [Suspect]
     Active Substance: DEXAMETHASONE
     Dosage: 8 MG
     Route: 048
     Dates: start: 20191213, end: 20200229
  9. BORTEZOMIB. [Suspect]
     Active Substance: BORTEZOMIB
     Dosage: 1.95 MG/M2
     Route: 058
     Dates: start: 20200207, end: 20200228
  10. VENETOCLAX. [Suspect]
     Active Substance: VENETOCLAX
     Dosage: 800 UNK (TABLET)
     Route: 048
     Dates: start: 20170428, end: 20171011
  11. COTRIMOXAZOLE [Concomitant]
     Active Substance: SULFAMETHOXAZOLE\TRIMETHOPRIM
     Dosage: 2880 MG
     Route: 048
     Dates: start: 20190329
  12. DEXAMETHASONE. [Suspect]
     Active Substance: DEXAMETHASONE
     Dosage: 20 MG
     Route: 048
     Dates: start: 20170428, end: 20190119
  13. BORTEZOMIB. [Suspect]
     Active Substance: BORTEZOMIB
     Dosage: 2 MG/M2
     Route: 058
     Dates: start: 20170821, end: 20200131
  14. LANSOPRAZOLE. [Concomitant]
     Active Substance: LANSOPRAZOLE
     Indication: GASTROOESOPHAGEAL REFLUX DISEASE
     Dosage: 30 MG, QD
     Route: 048
     Dates: start: 20171115
  15. ZOMETA [Concomitant]
     Active Substance: ZOLEDRONIC ACID
     Indication: PLASMA CELL MYELOMA
     Route: 042
  16. ACICLOVIR [Concomitant]
     Active Substance: ACYCLOVIR
     Indication: PROPHYLAXIS
     Dosage: 600 MG, QD
     Route: 048
     Dates: start: 20170428

REACTIONS (2)
  - Influenza B virus test positive [Recovered/Resolved]
  - Influenza [Recovered/Resolved]

NARRATIVE: CASE EVENT DATE: 20200306
